FAERS Safety Report 10286071 (Version 1)
Quarter: 2014Q3

REPORT INFORMATION
  Report Type: Spontaneous
  Country: US (occurrence: None)
  Receive Date: 20140703
  Receipt Date: 20140703
  Transmission Date: 20150326
  Serious: Yes (Other)
  Sender: FDA-Public Use
  Company Number: AEGR000557

PATIENT
  Age: 67 Year
  Sex: Male
  Weight: 69.4 kg

DRUGS (2)
  1. JUXTAPID [Suspect]
     Active Substance: LOMITAPIDE MESYLATE
     Indication: TYPE IIA HYPERLIPIDAEMIA
     Route: 048
     Dates: start: 20140512
  2. COZAAR [Concomitant]
     Active Substance: LOSARTAN POTASSIUM

REACTIONS (5)
  - Pyrexia [None]
  - Eye haemorrhage [None]
  - Pre-existing condition improved [None]
  - Weight decreased [None]
  - Sinusitis [None]

NARRATIVE: CASE EVENT DATE: 20140512
